FAERS Safety Report 11918114 (Version 1)
Quarter: 2016Q1

REPORT INFORMATION
  Report Type: Spontaneous
  Country: FR (occurrence: FR)
  Receive Date: 20160114
  Receipt Date: 20160114
  Transmission Date: 20160526
  Serious: Yes (Other)
  Sender: FDA-Public Use
  Company Number: FR-009507513-1601FRA002554

PATIENT
  Age: 50 Year
  Sex: Male

DRUGS (1)
  1. ISENTRESS [Suspect]
     Active Substance: RALTEGRAVIR POTASSIUM
     Dosage: 400 MG, QD
     Route: 048
     Dates: start: 20110211, end: 20151103

REACTIONS (2)
  - Depression [Recovering/Resolving]
  - Alcoholism [Recovering/Resolving]

NARRATIVE: CASE EVENT DATE: 201510
